FAERS Safety Report 13469102 (Version 6)
Quarter: 2017Q4

REPORT INFORMATION
  Report Type: Spontaneous
  Country: NO (occurrence: NO)
  Receive Date: 20170421
  Receipt Date: 20171211
  Transmission Date: 20180320
  Serious: Yes (Other)
  Sender: FDA-Public Use
  Company Number: NO-PFIZER INC-2017162436

PATIENT
  Age: 29 Year
  Sex: Female

DRUGS (4)
  1. FLAGYL [Suspect]
     Active Substance: METRONIDAZOLE\METRONIDAZOLE HYDROCHLORIDE
     Indication: STREPTOCOCCAL INFECTION
     Dosage: UNK
     Dates: start: 20000122, end: 20000204
  2. ZINACEF [Suspect]
     Active Substance: CEFUROXIME SODIUM
     Indication: STREPTOCOCCAL INFECTION
     Dosage: UNK
     Dates: start: 20000122, end: 20000204
  3. DALACIN [Suspect]
     Active Substance: CLINDAMYCIN
     Indication: STREPTOCOCCAL INFECTION
     Dosage: UNK
     Dates: start: 20000122, end: 20000204
  4. BENZATHINE PHENOXYMETHYL PENICILLIN [Suspect]
     Active Substance: PENICILLIN V BENZATHINE
     Indication: STREPTOCOCCAL INFECTION
     Dosage: UNK
     Dates: start: 20000122, end: 20000204

REACTIONS (10)
  - Anxiety [Unknown]
  - Disturbance in attention [Not Recovered/Not Resolved]
  - Memory impairment [Not Recovered/Not Resolved]
  - Ear congestion [Not Recovered/Not Resolved]
  - Tinnitus [Not Recovered/Not Resolved]
  - Restlessness [Not Recovered/Not Resolved]
  - Headache [Not Recovered/Not Resolved]
  - Hypoacusis [Not Recovered/Not Resolved]
  - Condition aggravated [Not Recovered/Not Resolved]
  - Insomnia [Not Recovered/Not Resolved]

NARRATIVE: CASE EVENT DATE: 20000218
